FAERS Safety Report 5959375-4 (Version None)
Quarter: 2008Q4

REPORT INFORMATION
  Report Type: 
  Country: None (occurrence: None)
  Receive Date: 20081119
  Receipt Date: 20081119
  Transmission Date: 20090506
  Serious: Yes (Life-Threatening)
  Sender: FDA-Public Use
  Company Number: None

PATIENT
  Sex: Male
  Weight: 75.6 kg

DRUGS (14)
  1. VALSARTAN [Suspect]
     Indication: HYPERTENSION
     Dosage: 80MG DAILY PO
     Route: 048
     Dates: start: 20080615, end: 20080624
  2. AMLODIPINE [Concomitant]
  3. CEFEPIME [Concomitant]
  4. METRONIDAZOLE [Concomitant]
  5. METOPROLOL TARTRATE [Concomitant]
  6. HEPARIN [Concomitant]
  7. LANSOPRAZOLE [Concomitant]
  8. MORPHINE [Concomitant]
  9. RANITIDINE [Concomitant]
  10. GUAIFENESIN [Concomitant]
  11. DOCUSATE [Concomitant]
  12. SENNA [Concomitant]
  13. FUROSEMIDE [Concomitant]
  14. LORAZEPAM [Concomitant]

REACTIONS (1)
  - BLOOD POTASSIUM INCREASED [None]
